FAERS Safety Report 4483031-5 (Version None)
Quarter: 2004Q3

REPORT INFORMATION
  Report Type: 
  Country: None (occurrence: None)
  Receive Date: 20040921
  Receipt Date: 20040510
  Transmission Date: 20050211
  Serious: Yes (Death)
  Sender: FDA-Public Use
  Company Number: 163-20785-04050232 (0)

PATIENT
  Age: 55 Year
  Sex: Male

DRUGS (7)
  1. THALOMID [Suspect]
     Indication: METASTASES TO CENTRAL NERVOUS SYSTEM
     Dosage: 300 MG QD ORAL
     Route: 048
     Dates: start: 20040212, end: 20040528
  2. THALOMID [Suspect]
     Indication: METASTASES TO LUNG
     Dosage: 300 MG QD ORAL
     Route: 048
     Dates: start: 20040212, end: 20040528
  3. THALOMID [Suspect]
     Indication: METASTATIC MALIGNANT MELANOMA
     Dosage: 300 MG QD ORAL
     Route: 048
     Dates: start: 20040212, end: 20040528
  4. TEMODAR [Concomitant]
  5. DILANTIN [Concomitant]
  6. DEPAKOTE [Concomitant]
  7. RANITIDINE [Concomitant]

REACTIONS (3)
  - DEATH [None]
  - DEEP VEIN THROMBOSIS [None]
  - DISEASE PROGRESSION [None]
